FAERS Safety Report 7516176-3 (Version None)
Quarter: 2011Q2

REPORT INFORMATION
  Report Type: 
  Country: None (occurrence: None)
  Receive Date: 20110601
  Receipt Date: 20110523
  Transmission Date: 20111010
  Serious: Yes (Hospitalization)
  Sender: FDA-Public Use
  Company Number: CN-JNJFOC-20110510627

PATIENT
  Age: 8 Year
  Sex: Male

DRUGS (6)
  1. IMODIUM [Suspect]
     Indication: VOMITING
     Route: 048
     Dates: start: 20110522, end: 20110522
  2. IMODIUM [Suspect]
     Indication: ABDOMINAL PAIN
     Route: 048
     Dates: start: 20110522, end: 20110522
  3. UNKNOWN MEDICATION [Suspect]
     Indication: DIARRHOEA
     Route: 048
     Dates: end: 20110522
  4. AZITHROMYCIN [Concomitant]
     Indication: INFLUENZA
     Route: 065
     Dates: start: 20110521
  5. IMODIUM [Suspect]
     Indication: DIARRHOEA
     Route: 048
     Dates: start: 20110522, end: 20110522
  6. UNKNOWN MEDICATION [Suspect]
     Indication: VOMITING
     Route: 048
     Dates: end: 20110522

REACTIONS (5)
  - BLOOD CREATINE PHOSPHOKINASE INCREASED [None]
  - INTENTIONAL DRUG MISUSE [None]
  - HYPOTONIA [None]
  - SOMNOLENCE [None]
  - PAIN IN EXTREMITY [None]
